FAERS Safety Report 11530805 (Version 1)
Quarter: 2015Q3

REPORT INFORMATION
  Report Type: Spontaneous
  Country: US (occurrence: US)
  Receive Date: 20150921
  Receipt Date: 20150921
  Transmission Date: 20151125
  Serious: No
  Sender: FDA-Public Use
  Company Number: US-GLAXOSMITHKLINE-US2015GSK134004

PATIENT
  Sex: Male

DRUGS (1)
  1. PROMACTA [Suspect]
     Active Substance: ELTROMBOPAG OLAMINE
     Indication: PLASMA CELL MYELOMA
     Dosage: 50 MG, QD
     Dates: start: 20150822

REACTIONS (7)
  - Pain [Unknown]
  - Asthenia [Unknown]
  - Blood glucose increased [Unknown]
  - Fatigue [Unknown]
  - Skin lesion excision [Unknown]
  - Insomnia [Unknown]
  - Nausea [Unknown]
